FAERS Safety Report 8252290-5 (Version None)
Quarter: 2012Q2

REPORT INFORMATION
  Report Type: 
  Country: None (occurrence: None)
  Receive Date: 20120402
  Receipt Date: 20111005
  Transmission Date: 20120825
  Serious: No
  Sender: FDA-Public Use
  Company Number: US-ABBOTT-11P-163-0862171-00

PATIENT
  Sex: Male
  Weight: 72.64 kg

DRUGS (2)
  1. ANDROGEL [Suspect]
     Indication: BLOOD TESTOSTERONE DECREASED
     Dosage: APPLIES TO SHOULDERS AND UPPER ARMS
     Dates: start: 20080101
  2. ANDROGEL [Suspect]

REACTIONS (3)
  - HAIR GROWTH ABNORMAL [None]
  - DRUG INEFFECTIVE [None]
  - HIRSUTISM [None]
